FAERS Safety Report 9298428 (Version 1)
Quarter: 2013Q2

REPORT INFORMATION
  Report Type: Spontaneous
  Country: US (occurrence: US)
  Receive Date: 20130520
  Receipt Date: 20130520
  Transmission Date: 20140414
  Serious: Yes (Other)
  Sender: FDA-Public Use
  Company Number: US-PFIZER INC-2013153992

PATIENT
  Age: 55 Year
  Sex: Male
  Weight: 69.39 kg

DRUGS (5)
  1. LYRICA [Suspect]
     Indication: PAIN
     Dosage: 150MG (ELABORATED AS TWO PILLS OF 75MG EACH) DAILY
  2. LYRICA [Suspect]
     Indication: PERONEAL NERVE INJURY
  3. TRUVADA [Suspect]
     Indication: HIV TEST POSITIVE
     Dosage: 1 DF, 1X/DAY
  4. NORVIR [Suspect]
     Indication: HIV TEST POSITIVE
     Dosage: 1 DF, 1X/DAY
  5. REYATAZ [Suspect]
     Indication: HIV TEST POSITIVE
     Dosage: 1 DF, 1X/DAY

REACTIONS (4)
  - Sensory loss [Not Recovered/Not Resolved]
  - Hypoaesthesia [Not Recovered/Not Resolved]
  - Blood cholesterol increased [Not Recovered/Not Resolved]
  - T-lymphocyte count increased [Not Recovered/Not Resolved]
